FAERS Safety Report 22093586 (Version 1)
Quarter: 2023Q1

REPORT INFORMATION
  Report Type: Spontaneous
  Country: US (occurrence: None)
  Receive Date: 20230313
  Receipt Date: 20230313
  Transmission Date: 20230418
  Serious: Yes (unspecified)
  Sender: FDA-Public Use
  Company Number: None

PATIENT
  Age: 68 Year
  Sex: Female
  Weight: 63 kg

DRUGS (1)
  1. PRECEDEX [Suspect]
     Active Substance: DEXMEDETOMIDINE HYDROCHLORIDE
     Dosage: OTHER FREQUENCY : AS NEEDED;?
     Route: 040
     Dates: start: 20230216, end: 20230216

REACTIONS (2)
  - Wrong product administered [None]
  - Product appearance confusion [None]

NARRATIVE: CASE EVENT DATE: 20230216
